FAERS Safety Report 8843187 (Version 1)
Quarter: 2012Q4

REPORT INFORMATION
  Report Type: 
  Country: US (occurrence: US)
  Receive Date: 20121016
  Receipt Date: 20121016
  Transmission Date: 20130627
  Serious: Yes (Other)
  Sender: FDA-Public Use
  Company Number: US-ROCHE-1138251

PATIENT
  Sex: Female

DRUGS (1)
  1. LUCENTIS [Suspect]
     Indication: RETINAL VEIN OCCLUSION
     Route: 065

REACTIONS (5)
  - Ulcerative keratitis [Unknown]
  - Ocular hyperaemia [Unknown]
  - Nerve injury [Unknown]
  - Pain [Unknown]
  - Eye burns [Unknown]
